FAERS Safety Report 8707668 (Version 3)
Quarter: 2013Q2

REPORT INFORMATION
  Report Type: Spontaneous
  Country: US (occurrence: US)
  Receive Date: 20120806
  Receipt Date: 20130520
  Transmission Date: 20140414
  Serious: No
  Sender: FDA-Public Use
  Company Number: US-009507513-1207USA011504

PATIENT
  Age: 6 Year
  Sex: Female
  Weight: 27.21 kg

DRUGS (2)
  1. SINGULAIR [Suspect]
     Indication: ASTHMA
     Dosage: 5 MG, QD
     Route: 048
     Dates: start: 201203, end: 20120718
  2. PROVENTIL [Concomitant]

REACTIONS (4)
  - Personality change [Recovered/Resolved]
  - Disturbance in attention [Recovered/Resolved]
  - Insomnia [Recovered/Resolved]
  - Irritability [Recovered/Resolved]
